FAERS Safety Report 4657123-1 (Version None)
Quarter: 2005Q2

REPORT INFORMATION
  Report Type: 
  Country: None (occurrence: None)
  Receive Date: 20050506
  Receipt Date: 20050425
  Transmission Date: 20051028
  Serious: Yes (Hospitalization, Other)
  Sender: FDA-Public Use
  Company Number: 2004104292

PATIENT
  Age: 7 Year
  Sex: Male

DRUGS (7)
  1. ZYRTEC-D 12 HOUR [Suspect]
     Indication: HYPERSENSITIVITY
     Dosage: ORAL
     Route: 048
     Dates: end: 20040801
  2. ZYRTEC-D 12 HOUR [Suspect]
     Indication: NASAL CONGESTION
     Dosage: ORAL
     Route: 048
     Dates: end: 20040801
  3. MONTELUKAST SODIUM (MONTELUKAST SODIUM) [Concomitant]
  4. BUDESONIDE [Concomitant]
  5. IPRATROPIUM BROMIDE [Concomitant]
  6. RANITIDINE HYDROCHLORIDE [Concomitant]
  7. SALBUTAMOL (SALBUTAMOL) [Concomitant]

REACTIONS (2)
  - PALPITATIONS [None]
  - SUPRAVENTRICULAR TACHYCARDIA [None]
